FAERS Safety Report 22005974 (Version 1)
Quarter: 2023Q1

REPORT INFORMATION
  Report Type: Spontaneous
  Country: US (occurrence: US)
  Receive Date: 20230217
  Receipt Date: 20230217
  Transmission Date: 20230418
  Serious: No
  Sender: FDA-Public Use
  Company Number: US-UPSHER-SMITH LABORATORIES, LLC-2022USL00825

PATIENT
  Sex: Female
  Weight: 113.38 kg

DRUGS (5)
  1. BUMETANIDE [Suspect]
     Active Substance: BUMETANIDE
     Indication: Cardiac failure
     Dosage: 5 MG, 1X/DAY WITH AN ADDITIONAL TAKEN IF WEIGHT GAIN GREATER THAN 2 POUNDS
     Dates: start: 202204, end: 20221009
  2. BUMETANIDE [Suspect]
     Active Substance: BUMETANIDE
     Dosage: 5 MG AT 5 PM IN EVENING
     Dates: start: 20221013
  3. KLONOPIN [Concomitant]
     Active Substance: CLONAZEPAM
     Dosage: UNK
     Dates: end: 202210
  4. KLONOPIN [Concomitant]
     Active Substance: CLONAZEPAM
     Dosage: DOSE INCREASED
     Dates: start: 202210
  5. UNSPECIFIED INGREDIENT [Concomitant]
     Active Substance: UNSPECIFIED INGREDIENT

REACTIONS (38)
  - Anticholinergic syndrome [Recovered/Resolved]
  - Anaphylactic reaction [Unknown]
  - Lip swelling [Recovered/Resolved]
  - Swelling face [Recovered/Resolved]
  - Dyskinesia [Recovered/Resolved]
  - Dyspnoea [Recovered/Resolved]
  - Dysphagia [Recovered/Resolved]
  - Joint swelling [Recovered/Resolved]
  - Peripheral swelling [Recovered/Resolved]
  - Urinary hesitation [Recovered/Resolved]
  - Urine output decreased [Recovered/Resolved]
  - Tremor [Not Recovered/Not Resolved]
  - Acne [Recovering/Resolving]
  - Blister [Recovering/Resolving]
  - Confusional state [Recovered/Resolved]
  - Somnolence [Recovered/Resolved]
  - Flushing [Recovered/Resolved]
  - Vision blurred [Recovered/Resolved]
  - Breath odour [Recovered/Resolved]
  - Presyncope [Recovered/Resolved]
  - Heart rate increased [Recovered/Resolved]
  - Decreased appetite [Recovered/Resolved]
  - Paraesthesia [Recovered/Resolved]
  - Hypoaesthesia [Recovered/Resolved]
  - Hypophagia [Recovered/Resolved]
  - Back pain [Recovered/Resolved]
  - Mood altered [Recovered/Resolved]
  - Dysgeusia [Recovered/Resolved]
  - Weight decreased [Not Recovered/Not Resolved]
  - Dark circles under eyes [Recovered/Resolved]
  - Food intolerance [Recovered/Resolved]
  - Asthenia [Not Recovered/Not Resolved]
  - Dry mouth [Recovered/Resolved]
  - Nausea [Recovered/Resolved]
  - Hyperhidrosis [Recovered/Resolved]
  - Arthralgia [Recovered/Resolved]
  - Pruritus [Recovered/Resolved]
  - Dizziness [Recovered/Resolved]

NARRATIVE: CASE EVENT DATE: 20220101
